FAERS Safety Report 4413520-0 (Version None)
Quarter: 2004Q3

REPORT INFORMATION
  Report Type: 
  Country: None (occurrence: None)
  Receive Date: 20040728
  Receipt Date: 20040601
  Transmission Date: 20050211
  Serious: Yes (Life-Threatening, Hospitalization, Other)
  Sender: FDA-Public Use
  Company Number: 200417538BWH

PATIENT
  Age: 70 Year
  Sex: Male

DRUGS (10)
  1. AVELOX [Suspect]
     Indication: ACUTE SINUSITIS
     Dates: start: 20021115
  2. CARDURA [Concomitant]
  3. IMDUR [Concomitant]
  4. ZOCOR [Concomitant]
  5. ZYLOPRIM [Concomitant]
  6. SYNTHROID [Concomitant]
  7. ECOTRIN [Concomitant]
  8. ACCUPRIL [Concomitant]
  9. TYLENOL [Concomitant]
  10. VICODIN [Concomitant]

REACTIONS (9)
  - ANAEMIA [None]
  - AZOTAEMIA [None]
  - PROSTATITIS [None]
  - PSEUDOMONAS INFECTION [None]
  - SINUSITIS [None]
  - STAPHYLOCOCCAL INFECTION [None]
  - STEVENS-JOHNSON SYNDROME [None]
  - TOXIC EPIDERMAL NECROLYSIS [None]
  - URINARY RETENTION [None]
